FAERS Safety Report 7996151-5 (Version None)
Quarter: 2011Q4

REPORT INFORMATION
  Report Type: 
  Country: None (occurrence: None)
  Receive Date: 20111220
  Receipt Date: 20111215
  Transmission Date: 20120403
  Serious: Yes (Death, Other)
  Sender: FDA-Public Use
  Company Number: PHHY2011NL109623

PATIENT
  Sex: Male

DRUGS (3)
  1. ZOMETA [Suspect]
     Dosage: 4 MG/5ML 1X PER 28 DAYS
     Dates: start: 20111129
  2. ZOMETA [Suspect]
     Dosage: 4 MG/5ML 1X PER 28 DAYS
     Dates: start: 20081107
  3. ZOMETA [Suspect]
     Dosage: 4 MG/5ML 1X PER 28 DAYS
     Dates: start: 20111102

REACTIONS (2)
  - DEATH [None]
  - GENERAL PHYSICAL HEALTH DETERIORATION [None]
